FAERS Safety Report 22162506 (Version 2)
Quarter: 2023Q2

REPORT INFORMATION
  Report Type: Report from Study
  Country: US (occurrence: US)
  Receive Date: 20230331
  Receipt Date: 20230619
  Transmission Date: 20230722
  Serious: Yes (Other)
  Sender: FDA-Public Use
  Company Number: US-APIL-2310039US

PATIENT
  Sex: Female

DRUGS (1)
  1. VRAYLAR [Suspect]
     Active Substance: CARIPRAZINE
     Indication: Product used for unknown indication
     Route: 048

REACTIONS (2)
  - Blindness [Unknown]
  - Diabetic retinopathy [Unknown]
